FAERS Safety Report 7820740-1 (Version None)
Quarter: 2011Q4

REPORT INFORMATION
  Report Type: 
  Country: None (occurrence: None)
  Receive Date: 20111018
  Receipt Date: 20111014
  Transmission Date: 20120403
  Serious: Yes (Hospitalization)
  Sender: FDA-Public Use
  Company Number: US-BRISTOL-MYERS SQUIBB COMPANY-14328769

PATIENT
  Age: 68 Year
  Sex: Male
  Weight: 70 kg

DRUGS (1)
  1. CISPLATIN [Suspect]
     Indication: HEAD AND NECK CANCER
     Dosage: LAST ADMINISTRED DATE: 15SEP2008.
     Dates: start: 20080819, end: 20080819

REACTIONS (6)
  - WHITE BLOOD CELL COUNT DECREASED [None]
  - INSOMNIA [None]
  - ANAEMIA [None]
  - PYREXIA [None]
  - FEBRILE NEUTROPENIA [None]
  - NEUTROPHIL COUNT DECREASED [None]
